FAERS Safety Report 5664515-0 (Version None)
Quarter: 2008Q1

REPORT INFORMATION
  Report Type: 
  Country: None (occurrence: None)
  Receive Date: 20080314
  Receipt Date: 20080310
  Transmission Date: 20080703
  Serious: Yes (Life-Threatening, Hospitalization)
  Sender: FDA-Public Use
  Company Number: B0512205A

PATIENT
  Age: 63 Year
  Sex: Male

DRUGS (15)
  1. LAMICTAL [Suspect]
     Indication: PSYCHOTIC DISORDER
     Route: 048
     Dates: start: 20050101
  2. LEPONEX [Suspect]
     Indication: PSYCHOTIC DISORDER
     Route: 048
     Dates: start: 20050101
  3. CITALOPRAM [Suspect]
     Indication: DEPRESSION
     Route: 048
     Dates: start: 20050103
  4. SUPRIUM [Suspect]
     Indication: PSYCHOTIC DISORDER
     Route: 048
     Dates: start: 20070725
  5. ACTOS [Concomitant]
     Route: 048
     Dates: start: 20060101
  6. AMARYL [Concomitant]
     Route: 048
     Dates: start: 20050101
  7. DIFORMIN RETARD [Concomitant]
     Route: 048
     Dates: start: 20050101
  8. PRIMASPAN [Concomitant]
     Route: 048
     Dates: start: 20050101
  9. SIMVASTATIN [Concomitant]
     Route: 048
     Dates: start: 20050101
  10. ENALAPRIL MALEATE [Concomitant]
     Route: 048
     Dates: start: 20050101
  11. XATRAL [Concomitant]
     Route: 048
     Dates: start: 20050101
  12. ZYPREXA [Concomitant]
     Indication: PSYCHOTIC DISORDER
     Dates: start: 20050101
  13. MOVICOL [Concomitant]
     Route: 048
  14. METALAX [Concomitant]
     Route: 065
  15. NOVORAPID [Concomitant]
     Route: 065

REACTIONS (4)
  - CARDIAC DISCOMFORT [None]
  - CARDIOMYOPATHY [None]
  - MALAISE [None]
  - VENTRICULAR TACHYCARDIA [None]
